FAERS Safety Report 20664230 (Version 1)
Quarter: 2022Q2

REPORT INFORMATION
  Report Type: Spontaneous
  Country: US (occurrence: None)
  Receive Date: 20220401
  Receipt Date: 20220401
  Transmission Date: 20220721
  Serious: Yes (Hospitalization)
  Sender: FDA-Public Use
  Company Number: None

PATIENT
  Sex: Female

DRUGS (2)
  1. ENBREL [Suspect]
     Active Substance: ETANERCEPT
     Indication: Ankylosing spondylitis
     Dosage: INJECT 50 MG UNDER THE SKIN (SUBCUTANEOUS INJECTION) EVERY 7 DAYS
     Route: 058
     Dates: start: 20210630
  2. TRAMADOL HCL TAB [Concomitant]

REACTIONS (3)
  - Pain [None]
  - Surgery [None]
  - Therapy interrupted [None]
